FAERS Safety Report 15413380 (Version 1)
Quarter: 2018Q4

REPORT INFORMATION
  Report Type: Spontaneous
  Country: US (occurrence: US)
  Receive Date: 20180921
  Receipt Date: 20180921
  Transmission Date: 20190204
  Serious: Yes (Hospitalization, Disabling, Other)
  Sender: FDA-Public Use
  Company Number: US-NEXGEN PHARMA, INC.-2055197

PATIENT

DRUGS (1)
  1. BUTALBITAL, ACETAMINOPHEN, AND CAFFEINE CAPSULES [Suspect]
     Active Substance: ACETAMINOPHEN\BUTALBITAL\CAFFEINE
     Indication: MIGRAINE
     Route: 048

REACTIONS (12)
  - Helicobacter infection [Unknown]
  - Transient ischaemic attack [Unknown]
  - Tremor [Unknown]
  - Clostridium difficile infection [Unknown]
  - Vomiting projectile [Unknown]
  - Rash [Unknown]
  - Proctalgia [Unknown]
  - Intracranial pressure increased [Unknown]
  - Asthenia [Unknown]
  - Gallbladder disorder [Unknown]
  - Pain [Unknown]
  - General physical health deterioration [Unknown]
